FAERS Safety Report 10142478 (Version 1)
Quarter: 2014Q2

REPORT INFORMATION
  Report Type: Spontaneous
  Country: US (occurrence: US)
  Receive Date: 20140430
  Receipt Date: 20140430
  Transmission Date: 20141212
  Serious: No
  Sender: FDA-Public Use
  Company Number: US-BIOGENIDEC-2014BI039492

PATIENT
  Age: 44 Year
  Sex: Male

DRUGS (1)
  1. AVONEX [Suspect]
     Indication: MULTIPLE SCLEROSIS
     Route: 030
     Dates: start: 20130501

REACTIONS (5)
  - Mass [Recovered/Resolved]
  - Swelling [Recovered/Resolved]
  - Contusion [Recovered/Resolved]
  - Injection site irritation [Recovered/Resolved]
  - Pruritus [Recovered/Resolved]
